FAERS Safety Report 25659645 (Version 1)
Quarter: 2025Q3

REPORT INFORMATION
  Report Type: Spontaneous
  Country: US (occurrence: US)
  Receive Date: 20250808
  Receipt Date: 20250808
  Transmission Date: 20251020
  Serious: No
  Sender: ITALFARMACO SPA
  Company Number: US-ITALFARMACO SPA-2182106

PATIENT
  Age: 87 Year
  Sex: Female
  Weight: 51.701 kg

DRUGS (7)
  1. TIGLUTIK [Suspect]
     Active Substance: RILUZOLE
     Dates: start: 20240404
  2. ATROPINE SULFATE [Concomitant]
     Active Substance: ATROPINE SULFATE
  3. TRANSDERM SCOP [Concomitant]
     Active Substance: SCOPOLAMINE
  4. NUEDEXTA [Concomitant]
     Active Substance: DEXTROMETHORPHAN HYDROBROMIDE\QUINIDINE SULFATE
  5. HYZAAR [Concomitant]
     Active Substance: HYDROCHLOROTHIAZIDE\LOSARTAN POTASSIUM
  6. KATE FARMS STANDARD 1.0 [Concomitant]
  7. ROBINUL [Concomitant]
     Active Substance: GLYCOPYRROLATE

REACTIONS (1)
  - Peripheral swelling [Not Recovered/Not Resolved]
